FAERS Safety Report 8969642 (Version 1)
Quarter: 2012Q4

REPORT INFORMATION
  Report Type: 
  Country: US (occurrence: US)
  Receive Date: 20121218
  Receipt Date: 20121218
  Transmission Date: 20130627
  Serious: No
  Sender: FDA-Public Use
  Company Number: US-009507513-1212USA005192

PATIENT
  Sex: Male

DRUGS (1)
  1. JANUVIA [Suspect]
     Dosage: UNK
     Dates: start: 20121205

REACTIONS (1)
  - Abdominal discomfort [Unknown]
